FAERS Safety Report 21791182 (Version 1)
Quarter: 2022Q4

REPORT INFORMATION
  Report Type: Spontaneous
  Country: US (occurrence: None)
  Receive Date: 20221227
  Receipt Date: 20221227
  Transmission Date: 20230113
  Serious: Yes (Hospitalization)
  Sender: FDA-Public Use
  Company Number: None

PATIENT
  Sex: Male

DRUGS (17)
  1. TACROLIMUS [Suspect]
     Active Substance: TACROLIMUS
     Indication: Renal transplant
     Dosage: 1 MG ORAL??TAKE 1 CAPSULE BY MOUTH EVERY MORNING AND 1 CAPSULE EVERY EVENING?
     Route: 048
     Dates: start: 20211008
  2. ACITRETIN [Concomitant]
     Active Substance: ACITRETIN
  3. CALCIUM [Concomitant]
     Active Substance: CALCIUM
  4. EVEROLIMUS [Concomitant]
     Active Substance: EVEROLIMUS
  5. FLUOROURACIL [Concomitant]
     Active Substance: FLUOROURACIL
  6. GABAPENTIN [Concomitant]
     Active Substance: GABAPENTIN
  7. ACETAMINOPHEN\HYDROCODONE [Concomitant]
     Active Substance: ACETAMINOPHEN\HYDROCODONE
  8. HYDROXYZINE HYDROCHLORIDE [Concomitant]
     Active Substance: HYDROXYZINE HYDROCHLORIDE
  9. MAGNESIUM POW ALLUMINUM [Concomitant]
  10. METHYLPREDNISOLONE [Concomitant]
     Active Substance: METHYLPREDNISOLONE
  11. METOPROL TAR TAB [Concomitant]
  12. MYCOPHENOLATE MOFETIL [Concomitant]
     Active Substance: MYCOPHENOLATE MOFETIL
  13. PREDNISONE [Concomitant]
     Active Substance: PREDNISONE
  14. SIMVASTATIN [Concomitant]
     Active Substance: SIMVASTATIN
  15. TRIAMCINOLON OIN [Concomitant]
  16. VITAMIN C [Concomitant]
     Active Substance: ASCORBIC ACID
  17. ZINC [Concomitant]
     Active Substance: ZINC

REACTIONS (2)
  - Diverticulitis [None]
  - Therapy interrupted [None]
